FAERS Safety Report 5905031-8 (Version None)
Quarter: 2008Q4

REPORT INFORMATION
  Report Type: 
  Country: None (occurrence: None)
  Receive Date: 20081001
  Receipt Date: 20080922
  Transmission Date: 20090506
  Serious: Yes (Hospitalization)
  Sender: FDA-Public Use
  Company Number: US-AVENTIS-200812092US

PATIENT
  Sex: Female

DRUGS (16)
  1. KETEK [Suspect]
     Dosage: DOSE: UNK
     Dates: start: 20060201, end: 20060401
  2. CRESTOR [Concomitant]
     Dosage: DOSE: UNK
  3. HYDROCODONE BITARTRATE [Concomitant]
     Dosage: DOSE: UNK
  4. HYDROMORPHONE HCL [Concomitant]
     Dosage: DOSE: UNK
  5. DILAUDID [Concomitant]
     Dosage: DOSE: UNK
  6. ZOFRAN [Concomitant]
     Dosage: DOSE: UNK
  7. PHENERGAN HCL [Concomitant]
     Dosage: DOSE: UNK
  8. TYLENOL (CAPLET) [Concomitant]
  9. NEXIUM [Concomitant]
  10. BENADRYL [Concomitant]
  11. LEVSIN [Concomitant]
     Route: 048
  12. FIORICET [Concomitant]
     Dosage: DOSE: UNK
  13. SEPTRA DS [Concomitant]
     Dosage: DOSE: UNK
     Route: 048
  14. FLONASE [Concomitant]
     Dosage: DOSE: 2 SPRAYS EACH NOSTRIL
  15. LEVBID [Concomitant]
  16. SCOPOLAMINE [Concomitant]
     Dosage: DOSE: UNK

REACTIONS (8)
  - ABDOMINAL PAIN [None]
  - CHOLECYSTITIS [None]
  - DIARRHOEA [None]
  - GALLBLADDER OPERATION [None]
  - HEADACHE [None]
  - LIVER FUNCTION TEST ABNORMAL [None]
  - NAUSEA [None]
  - VOMITING [None]
